FAERS Safety Report 7619625-5 (Version None)
Quarter: 2011Q3

REPORT INFORMATION
  Report Type: 
  Country: None (occurrence: None)
  Receive Date: 20110719
  Receipt Date: 20110706
  Transmission Date: 20111222
  Serious: Yes (Life-Threatening, Hospitalization, Other)
  Sender: FDA-Public Use
  Company Number: US-BAYER-201029722NA

PATIENT
  Age: 30 Year
  Sex: Female
  Weight: 60 kg

DRUGS (4)
  1. YASMIN [Suspect]
     Indication: ACNE
  2. PRAVENTIN BIOACTIVE [Concomitant]
     Indication: ACNE
     Dosage: UNK UNK, CONT
     Route: 048
  3. PRILOSEC [Concomitant]
     Dosage: UNK UNK, PRN
     Route: 048
  4. YASMIN [Suspect]
     Indication: CONTRACEPTION
     Dosage: UNK
     Dates: start: 20060101, end: 20080101

REACTIONS (6)
  - ARRHYTHMIA [None]
  - CHEST PAIN [None]
  - ORGAN FAILURE [None]
  - CHOLECYSTITIS CHRONIC [None]
  - GALLBLADDER DISORDER [None]
  - CARDIAC MURMUR [None]
